FAERS Safety Report 18911571 (Version 1)
Quarter: 2021Q1

REPORT INFORMATION
  Report Type: Spontaneous
  Country: US (occurrence: US)
  Receive Date: 20210218
  Receipt Date: 20210218
  Transmission Date: 20210420
  Serious: Yes (Other)
  Sender: FDA-Public Use
  Company Number: US-009507513-2102USA006441

PATIENT
  Age: 75 Year
  Sex: Male

DRUGS (3)
  1. INLYTA [Suspect]
     Active Substance: AXITINIB
     Dosage: 3 MG IN THE MORNING AND AT NIGHT.
  2. INLYTA [Suspect]
     Active Substance: AXITINIB
     Indication: METASTATIC RENAL CELL CARCINOMA
     Dosage: 5MG IN THE MORNING AND AT NIGHT
  3. KEYTRUDA [Suspect]
     Active Substance: PEMBROLIZUMAB
     Indication: METASTATIC RENAL CELL CARCINOMA
     Dosage: INFUSIONS EVERY 3 WEEKS

REACTIONS (16)
  - Cardiac disorder [Unknown]
  - Gait disturbance [Unknown]
  - Memory impairment [Unknown]
  - Hepatic function abnormal [Unknown]
  - Weight decreased [Unknown]
  - Decreased appetite [Unknown]
  - Pain in extremity [Unknown]
  - Mental impairment [Unknown]
  - Dysphagia [Unknown]
  - Renal impairment [Unknown]
  - Chest pain [Unknown]
  - Pain [Unknown]
  - Tooth disorder [Unknown]
  - Tongue ulceration [Unknown]
  - Feeling abnormal [Unknown]
  - Stomatitis [Unknown]
